FAERS Safety Report 10416365 (Version 1)
Quarter: 2014Q3

REPORT INFORMATION
  Report Type: Spontaneous
  Country: US (occurrence: US)
  Receive Date: 20140828
  Receipt Date: 20140828
  Transmission Date: 20150326
  Serious: No
  Sender: FDA-Public Use
  Company Number: US-ELI_LILLY_AND_COMPANY-US201408009519

PATIENT
  Sex: Female

DRUGS (1)
  1. TERIPARATIDE [Suspect]
     Active Substance: TERIPARATIDE
     Indication: OSTEOPENIA
     Dosage: UNK UNK, QD
     Route: 065
     Dates: start: 201401

REACTIONS (5)
  - Mobility decreased [Unknown]
  - Off label use [Unknown]
  - Memory impairment [Unknown]
  - Blood potassium decreased [Unknown]
  - Drug dose omission [Unknown]

NARRATIVE: CASE EVENT DATE: 2014
